FAERS Safety Report 8607984 (Version 2)
Quarter: 2013Q3

REPORT INFORMATION
  Report Type: Spontaneous
  Country: US (occurrence: US)
  Receive Date: 20120611
  Receipt Date: 20130723
  Transmission Date: 20140515
  Serious: Yes (Hospitalization)
  Sender: FDA-Public Use
  Company Number: US-ASTRAZENECA-2012SE35410

PATIENT
  Age: 642 Month
  Sex: Female

DRUGS (3)
  1. NEXIUM [Suspect]
     Indication: GASTROOESOPHAGEAL REFLUX DISEASE
     Route: 048
  2. LEXAPRO [Concomitant]
     Indication: ANXIETY
  3. VITAMIN D [Concomitant]
     Indication: BONE LOSS

REACTIONS (5)
  - Ankle fracture [Unknown]
  - Osteoporosis [Unknown]
  - Bone density decreased [Unknown]
  - Calcium deficiency [Unknown]
  - Vitamin D deficiency [Unknown]
